FAERS Safety Report 21737435 (Version 1)
Quarter: 2022Q4

REPORT INFORMATION
  Report Type: Spontaneous
  Country: IL (occurrence: IL)
  Receive Date: 20221216
  Receipt Date: 20221216
  Transmission Date: 20230113
  Serious: Yes (Other)
  Sender: FDA-Public Use
  Company Number: IL-ALKEM LABORATORIES LIMITED-IL-ALKEM-2022-13981

PATIENT

DRUGS (1)
  1. TACROLIMUS [Suspect]
     Active Substance: TACROLIMUS
     Indication: Immunosuppression
     Dosage: 5.9 NANOGRAM PER MILLLIITER
     Route: 065

REACTIONS (2)
  - Hypertrophic cardiomyopathy [Recovered/Resolved]
  - Generalised oedema [Recovered/Resolved]
